FAERS Safety Report 4643386-5 (Version None)
Quarter: 2005Q2

REPORT INFORMATION
  Report Type: 
  Country: None (occurrence: None)
  Receive Date: 20050422
  Receipt Date: 20050408
  Transmission Date: 20051028
  Serious: Yes (Other)
  Sender: FDA-Public Use
  Company Number: 2005022736

PATIENT
  Age: 42 Year
  Sex: Male
  Weight: 86.1834 kg

DRUGS (4)
  1. CELEBREX [Suspect]
     Indication: BACK PAIN
     Dosage: 200 MG, ORAL
     Route: 048
     Dates: start: 20010101, end: 20010101
  2. BEXTRA [Suspect]
     Indication: NECK PAIN
     Dosage: 20 MG (20 MG, 1 IN 1 D), ORAL
     Route: 048
     Dates: start: 20031215, end: 20040101
  3. BEXTRA [Suspect]
     Indication: PAIN IN JAW
     Dosage: 20 MG (20 MG, 1 IN 1 D), ORAL
     Route: 048
     Dates: start: 20031215, end: 20040101
  4. ASPIRIN [Concomitant]

REACTIONS (18)
  - AGITATION [None]
  - CEREBROVASCULAR ACCIDENT [None]
  - DRUG ADMINISTRATION ERROR [None]
  - DRUG HYPERSENSITIVITY [None]
  - GASTRIC HAEMORRHAGE [None]
  - HAEMATEMESIS [None]
  - HYPERTENSION [None]
  - INFLUENZA [None]
  - LIVER DISORDER [None]
  - MYOCARDIAL INFARCTION [None]
  - PARAESTHESIA [None]
  - PARANOIA [None]
  - PHYSICAL ASSAULT [None]
  - SLEEP DISORDER DUE TO GENERAL MEDICAL CONDITION, INSOMNIA TYPE [None]
  - TINNITUS [None]
  - TOOTH DISORDER [None]
  - VISION BLURRED [None]
  - VOMITING [None]
